FAERS Safety Report 10746120 (Version 1)
Quarter: 2015Q1

REPORT INFORMATION
  Report Type: Spontaneous
  Country: US (occurrence: US)
  Receive Date: 20150128
  Receipt Date: 20150128
  Transmission Date: 20150721
  Serious: No
  Sender: FDA-Public Use
  Company Number: US-SHIRE-US201500554

PATIENT
  Sex: Female
  Weight: 108.84 kg

DRUGS (7)
  1. CRESTOR [Concomitant]
     Active Substance: ROSUVASTATIN CALCIUM
     Indication: BLOOD CHOLESTEROL
     Dosage: 10 MG, 1X/DAY:QD
     Route: 048
     Dates: start: 2004
  2. CARVEDILOL. [Concomitant]
     Active Substance: CARVEDILOL
     Indication: CEREBROVASCULAR ACCIDENT
     Dosage: 6.25 MG, 2X/DAY:BID
     Route: 048
     Dates: start: 2009
  3. LIALDA [Suspect]
     Active Substance: MESALAMINE
     Indication: CROHN^S DISEASE
     Dosage: 2.4 G (TWO 1.2 G TABLETS), 1X/DAY:QD
     Route: 048
  4. FLUOXETINE [Concomitant]
     Active Substance: FLUOXETINE\FLUOXETINE HYDROCHLORIDE
     Indication: DEPRESSION
     Dosage: 20 MG, 2X/DAY:BID
     Route: 048
  5. BENAZEPRIL [Concomitant]
     Active Substance: BENAZEPRIL\BENAZEPRIL HYDROCHLORIDE
     Indication: HYPERTENSION
     Dosage: 20 MG, 1X/DAY:QD
     Route: 048
     Dates: start: 2009
  6. ASPIRIN                            /00002701/ [Concomitant]
     Active Substance: ASPIRIN
     Indication: CEREBROVASCULAR ACCIDENT
     Dosage: 81 MG, 1X/DAY:QD
     Route: 048
     Dates: start: 2009
  7. VITAMIN B12 [Concomitant]
     Active Substance: CYANOCOBALAMIN
     Indication: CROHN^S DISEASE
     Dosage: 2000 ?G, 1X/DAY:QD
     Route: 048
     Dates: start: 1991

REACTIONS (2)
  - No adverse event [Not Recovered/Not Resolved]
  - Product use issue [Not Recovered/Not Resolved]
